FAERS Safety Report 16036067 (Version 1)
Quarter: 2019Q1

REPORT INFORMATION
  Report Type: Report from Study
  Country: JP (occurrence: JP)
  Receive Date: 20190305
  Receipt Date: 20190305
  Transmission Date: 20190418
  Serious: Yes (Hospitalization)
  Sender: FDA-Public Use
  Company Number: JP-SHIONOGI, INC.-2019000118

PATIENT
  Age: 79 Year
  Sex: Male

DRUGS (10)
  1. OXYCODONE [Concomitant]
     Active Substance: OXYCODONE
     Dosage: 30 MG, QD
     Route: 048
     Dates: start: 20181219, end: 20181225
  2. LYRICA [Concomitant]
     Active Substance: PREGABALIN
     Indication: CANCER PAIN
     Dosage: UNK
     Route: 048
     Dates: end: 20181225
  3. BAYASPIRIN [Concomitant]
     Active Substance: ASPIRIN
     Indication: PLASMA CELL MYELOMA
     Dosage: UNK
     Route: 048
     Dates: start: 20181211, end: 20181225
  4. FEBURIC [Concomitant]
     Active Substance: FEBUXOSTAT
     Indication: PLASMA CELL MYELOMA
     Dosage: UNK
     Route: 048
     Dates: start: 20181211, end: 20181225
  5. OXYCODONE [Concomitant]
     Active Substance: OXYCODONE
     Indication: CANCER PAIN
     Dosage: 10 MG, QD
     Route: 048
     Dates: start: 20181207, end: 20181210
  6. SYMPROIC [Suspect]
     Active Substance: NALDEMEDINE
     Indication: CONSTIPATION
     Dosage: 0.2 MG, QD
     Route: 048
     Dates: start: 20181210, end: 20181225
  7. OXYCODONE [Concomitant]
     Active Substance: OXYCODONE
     Dosage: 20 MG, QD
     Route: 048
     Dates: start: 20181211, end: 20181218
  8. MAGMITT [Concomitant]
     Active Substance: MAGNESIUM OXIDE
     Indication: CONSTIPATION
     Dosage: 990 MG, QD
     Route: 048
     Dates: start: 20181207, end: 20181225
  9. REVLIMID [Concomitant]
     Active Substance: LENALIDOMIDE
     Indication: PLASMA CELL MYELOMA
     Dosage: UNK
     Route: 048
     Dates: start: 20181211, end: 20181225
  10. LENADEX [Concomitant]
     Active Substance: DEXAMETHASONE ACETATE
     Indication: PLASMA CELL MYELOMA
     Dosage: UNK
     Route: 048
     Dates: start: 20181211, end: 20181214

REACTIONS (2)
  - Diarrhoea [Recovered/Resolved]
  - Dehydration [Recovered/Resolved]

NARRATIVE: CASE EVENT DATE: 20181222
